FAERS Safety Report 24089094 (Version 1)
Quarter: 2024Q3

REPORT INFORMATION
  Report Type: Spontaneous
  Country: IT (occurrence: IT)
  Receive Date: 20240715
  Receipt Date: 20240715
  Transmission Date: 20241017
  Serious: Yes (Hospitalization)
  Sender: STRIDES
  Company Number: IT-STRIDES ARCOLAB LIMITED-2023SP011051

PATIENT
  Age: 69 Year
  Sex: Female

DRUGS (5)
  1. ZOLPIDEM [Suspect]
     Active Substance: ZOLPIDEM TARTRATE
     Indication: Anxiety
     Dosage: 10 MILLIGRAM, QD
     Route: 065
  2. ZOLPIDEM [Suspect]
     Active Substance: ZOLPIDEM TARTRATE
     Indication: Insomnia
     Dosage: UNK, (30/40 MG PER DAY)
     Route: 065
  3. ZOLPIDEM [Suspect]
     Active Substance: ZOLPIDEM TARTRATE
     Dosage: UNK, (UP TO 50 MG/DAY )
     Route: 065
  4. ZOLPIDEM [Suspect]
     Active Substance: ZOLPIDEM TARTRATE
     Dosage: UNK, (40-50 MG/DAY)
     Route: 065
  5. ZOLPIDEM [Suspect]
     Active Substance: ZOLPIDEM TARTRATE
     Dosage: UNK, (DOSE REDUCED)
     Route: 065

REACTIONS (2)
  - Attention deficit hyperactivity disorder [Recovered/Resolved]
  - Intentional product misuse [Unknown]
